FAERS Safety Report 8354847-X (Version None)
Quarter: 2012Q2

REPORT INFORMATION
  Report Type: 
  Country: None (occurrence: None)
  Receive Date: 20120511
  Receipt Date: 20111012
  Transmission Date: 20120825
  Serious: Yes (Other)
  Sender: FDA-Public Use
  Company Number: US-ALEXION-A201001093

PATIENT
  Sex: Female

DRUGS (3)
  1. SOLIRIS [Suspect]
     Indication: PAROXYSMAL NOCTURNAL HAEMOGLOBINURIA
     Dosage: 600 MG, QW
     Route: 042
     Dates: start: 20080917
  2. PNEUMOCOCCAL VACCINE [Concomitant]
     Dosage: UNK
     Dates: start: 20111012, end: 20111012
  3. SOLIRIS [Suspect]
     Dosage: 900 MG, Q2W
     Route: 042
     Dates: start: 20081015, end: 20100713

REACTIONS (6)
  - HAEMOGLOBINURIA [None]
  - BORDERLINE OVARIAN TUMOUR [None]
  - ENDOMETRIAL HYPERPLASIA [None]
  - PELVIC CONGESTION [None]
  - MENORRHAGIA [None]
  - PELVIC VENOUS THROMBOSIS [None]
